FAERS Safety Report 6520041-8 (Version None)
Quarter: 2009Q4

REPORT INFORMATION
  Report Type: 
  Country: None (occurrence: None)
  Receive Date: 20091229
  Receipt Date: 20091215
  Transmission Date: 20100525
  Serious: Yes (Other)
  Sender: FDA-Public Use
  Company Number: PHHY2009BR56149

PATIENT
  Age: 6 Year
  Sex: Male

DRUGS (3)
  1. TEGRETOL [Suspect]
     Indication: FEBRILE CONVULSION
     Dosage: 5 ML DAILY
     Route: 048
  2. TEGRETOL [Suspect]
     Dosage: 15ML AT NIGHT AND 5ML IN THE MORNING
     Route: 048
  3. TOFRANIL [Suspect]
     Indication: NERVOUSNESS
     Dosage: 10 MG, UNK

REACTIONS (10)
  - CHAPPED LIPS [None]
  - DRUG DOSE OMISSION [None]
  - HEADACHE [None]
  - IRRITABILITY [None]
  - LIP HAEMORRHAGE [None]
  - NAUSEA [None]
  - OCULAR HYPERAEMIA [None]
  - ONYCHOPHAGIA [None]
  - PYREXIA [None]
  - SOMNOLENCE [None]
